FAERS Safety Report 8902140 (Version 1)
Quarter: 2012Q4

REPORT INFORMATION
  Report Type: 
  Country: ES (occurrence: ES)
  Receive Date: 20121112
  Receipt Date: 20121112
  Transmission Date: 20130627
  Serious: Yes (Other)
  Sender: FDA-Public Use
  Company Number: ES-ROCHE-CID000000002218551

PATIENT
  Sex: Female

DRUGS (5)
  1. TRASTUZUMAB [Suspect]
     Indication: BREAST CANCER
     Route: 065
  2. PACLITAXEL [Suspect]
     Indication: BREAST CANCER
     Route: 065
  3. FLUOROURACIL [Suspect]
     Indication: BREAST CANCER
     Route: 065
  4. EPIRUBICIN [Suspect]
     Indication: BREAST CANCER
     Route: 065
  5. CYCLOPHOSPHAMIDE [Suspect]
     Indication: BREAST CANCER
     Route: 065

REACTIONS (7)
  - Neutropenia [Unknown]
  - Febrile neutropenia [Unknown]
  - Pulmonary embolism [Unknown]
  - Ischaemic stroke [Unknown]
  - Atrial fibrillation [Unknown]
  - Diarrhoea [Unknown]
  - Neuropathy peripheral [Unknown]
